FAERS Safety Report 4941532-7 (Version None)
Quarter: 2006Q1

REPORT INFORMATION
  Report Type: 
  Country: None (occurrence: None)
  Receive Date: 20060307
  Receipt Date: 20060223
  Transmission Date: 20060701
  Serious: Yes (Hospitalization)
  Sender: FDA-Public Use
  Company Number: FRWYE426724FEB06

PATIENT
  Age: 70 Year
  Sex: Male

DRUGS (3)
  1. RAPAMUNE [Suspect]
     Indication: PROPHYLAXIS AGAINST TRANSPLANT REJECTION
     Dosage: ORAL
     Route: 048
  2. CELLCEPT [Concomitant]
  3. CORTANCYL (PREDNISONE) [Concomitant]

REACTIONS (1)
  - ANGINA BULLOSA HAEMORRHAGICA [None]
